FAERS Safety Report 21308194 (Version 1)
Quarter: 2022Q3

REPORT INFORMATION
  Report Type: Spontaneous
  Country: JP (occurrence: JP)
  Receive Date: 20220908
  Receipt Date: 20220908
  Transmission Date: 20221027
  Serious: Yes (Death)
  Sender: FDA-Public Use
  Company Number: JP-JNJFOC-20211004869

PATIENT
  Age: 7 Decade
  Sex: Male

DRUGS (4)
  1. OPSUMIT [Suspect]
     Active Substance: MACITENTAN
     Indication: Pulmonary arterial hypertension
     Route: 048
     Dates: start: 20210917, end: 20210928
  2. DORMICUM [Concomitant]
     Dosage: DOSE UNKNOWN
     Route: 065
  3. LANDIOLOL HYDROCHLORIDE [Concomitant]
     Active Substance: LANDIOLOL HYDROCHLORIDE
     Dosage: DOSE UNKNOWN
     Route: 065
  4. FENTANYL [Concomitant]
     Active Substance: FENTANYL

REACTIONS (2)
  - Multiple organ dysfunction syndrome [Fatal]
  - Aortic dissection [Fatal]

NARRATIVE: CASE EVENT DATE: 20210901
